FAERS Safety Report 6380449-0 (Version None)
Quarter: 2009Q3

REPORT INFORMATION
  Report Type: 
  Country: None (occurrence: None)
  Receive Date: 20090929
  Receipt Date: 20090114
  Transmission Date: 20100115
  Serious: No
  Sender: FDA-Public Use
  Company Number: US-BAYER-200910971NA

PATIENT
  Sex: Male
  Weight: 77 kg

DRUGS (2)
  1. MAGNEVIST [Suspect]
     Indication: NUCLEAR MAGNETIC RESONANCE IMAGING
     Dosage: TOTAL DAILY DOSE: 15 ML  UNIT DOSE: 15 ML
     Route: 042
     Dates: start: 20090113, end: 20090113
  2. ALBUTEROL [Concomitant]
     Dosage: INHALER

REACTIONS (2)
  - THROAT TIGHTNESS [None]
  - WHEEZING [None]
